FAERS Safety Report 23227158 (Version 1)
Quarter: 2023Q4

REPORT INFORMATION
  Report Type: Spontaneous
  Country: US (occurrence: US)
  Receive Date: 20231124
  Receipt Date: 20231124
  Transmission Date: 20240110
  Serious: Yes (Death, Other)
  Sender: FDA-Public Use
  Company Number: US-ENDO-CASE-0045962

PATIENT
  Sex: Male

DRUGS (7)
  1. ACETAMINOPHEN\OXYCODONE HYDROCHLORIDE [Suspect]
     Active Substance: ACETAMINOPHEN\OXYCODONE HYDROCHLORIDE
  2. PERCOCET [Suspect]
     Active Substance: ACETAMINOPHEN\OXYCODONE HYDROCHLORIDE
  3. ENDOCET [Suspect]
     Active Substance: ACETAMINOPHEN\OXYCODONE HYDROCHLORIDE
  4. OXYMORPHONE HYDROCHLORIDE [Suspect]
     Active Substance: OXYMORPHONE HYDROCHLORIDE
  5. DEPODUR [Suspect]
     Active Substance: MORPHINE SULFATE
  6. FENTANYL CITRATE [Suspect]
     Active Substance: FENTANYL CITRATE
  7. OPANA [Suspect]
     Active Substance: OXYMORPHONE HYDROCHLORIDE

REACTIONS (3)
  - Death [Fatal]
  - Overdose [Unknown]
  - Dependence [Unknown]
